FAERS Safety Report 4996045-3 (Version None)
Quarter: 2006Q2

REPORT INFORMATION
  Report Type: 
  Country: None (occurrence: None)
  Receive Date: 20060508
  Receipt Date: 20060428
  Transmission Date: 20061013
  Serious: Yes (Hospitalization)
  Sender: FDA-Public Use
  Company Number: US-MERCK-0605USA00523

PATIENT
  Age: 58 Year
  Sex: Female
  Weight: 68 kg

DRUGS (15)
  1. VIOXX [Suspect]
     Indication: ARTHRITIS
     Route: 048
     Dates: start: 20001101, end: 20010601
  2. NORITATE [Concomitant]
     Route: 065
  3. AMBIEN [Concomitant]
     Route: 065
  4. BECONASE [Concomitant]
     Route: 065
  5. ACETAMINOPHEN AND HYDROCODONE BITARTRATE [Concomitant]
     Route: 065
  6. AUGMENTIN '125' [Concomitant]
     Route: 065
  7. FOSAMAX [Concomitant]
     Route: 048
  8. DIFLUCAN [Concomitant]
     Route: 065
  9. TRIAMCIN [Concomitant]
     Route: 065
  10. CEPHALEXIN [Concomitant]
     Route: 065
  11. ATROVENT [Concomitant]
     Route: 065
  12. LEVAQUIN [Concomitant]
     Route: 065
  13. PLAVIX [Concomitant]
     Route: 065
  14. DILTIAZEM HYDROCHLORIDE [Concomitant]
     Route: 048
  15. HYDROCODONE BITARTRATE [Concomitant]
     Route: 065

REACTIONS (9)
  - ARTERIAL STENOSIS [None]
  - CAROTID ARTERY STENOSIS [None]
  - DIVERTICULUM [None]
  - EMOTIONAL DISORDER [None]
  - GASTRITIS [None]
  - HAEMORRHOIDS [None]
  - HIATUS HERNIA [None]
  - RECTAL HAEMORRHAGE [None]
  - TRANSIENT ISCHAEMIC ATTACK [None]
